FAERS Safety Report 19063214 (Version 1)
Quarter: 2021Q1

REPORT INFORMATION
  Report Type: Spontaneous
  Country: US (occurrence: US)
  Receive Date: 20210326
  Receipt Date: 20210326
  Transmission Date: 20210420
  Serious: No
  Sender: FDA-Public Use
  Company Number: None

PATIENT
  Age: 78 Year
  Sex: Male
  Weight: 80.25 kg

DRUGS (1)
  1. CARBOPLATIN. [Suspect]
     Active Substance: CARBOPLATIN
     Indication: NEOPLASM MALIGNANT
     Dosage: ?          OTHER FREQUENCY:ONCE/WEEK;?
     Route: 042
     Dates: start: 20210316, end: 20210316

REACTIONS (5)
  - Cough [None]
  - Dyspnoea [None]
  - Erythema [None]
  - Blood pressure increased [None]
  - Oxygen saturation decreased [None]

NARRATIVE: CASE EVENT DATE: 20210316
